FAERS Safety Report 15104155 (Version 16)
Quarter: 2023Q2

REPORT INFORMATION
  Report Type: Spontaneous
  Country: IN (occurrence: IN)
  Receive Date: 20180703
  Receipt Date: 20230428
  Transmission Date: 20230721
  Serious: Yes (Hospitalization, Other)
  Sender: FDA-Public Use
  Company Number: IN-PFIZER INC-2018162191

PATIENT
  Age: 67 Year
  Sex: Female

DRUGS (5)
  1. PALBOCICLIB [Suspect]
     Active Substance: PALBOCICLIB
     Indication: Breast cancer metastatic
     Dosage: 125 MG, 1X/DAY
     Route: 048
     Dates: start: 20170904
  2. PALBOCICLIB [Suspect]
     Active Substance: PALBOCICLIB
     Dosage: 125 MG, CYCLIC (ONCE DAILY FOR 21 DAYS/30 DAYS)
     Route: 048
  3. PALBOCICLIB [Suspect]
     Active Substance: PALBOCICLIB
     Dosage: 100 MG, 1X/DAY
     Route: 048
  4. CRIZOTINIB [Suspect]
     Active Substance: CRIZOTINIB
     Indication: Breast cancer metastatic
     Dosage: 250 MG, 2X/DAY
     Route: 048
     Dates: start: 20170904
  5. LETROZOLE [Concomitant]
     Active Substance: LETROZOLE
     Dosage: 2.5 MG, 1X/DAY

REACTIONS (29)
  - Diarrhoea [Unknown]
  - Dyspnoea [Unknown]
  - Asthma [Unknown]
  - General physical health deterioration [Unknown]
  - Nephrolithiasis [Unknown]
  - Neoplasm progression [Unknown]
  - Pain [Not Recovered/Not Resolved]
  - Chills [Not Recovered/Not Resolved]
  - Asthenia [Unknown]
  - Fatigue [Unknown]
  - Pyrexia [Unknown]
  - Cough [Unknown]
  - Malaise [Unknown]
  - Chest pain [Unknown]
  - White blood cell count abnormal [Unknown]
  - White blood cell count decreased [Unknown]
  - Pleural effusion [Unknown]
  - Atelectasis [Unknown]
  - Bone pain [Unknown]
  - Uterine atrophy [Unknown]
  - Ovarian atrophy [Unknown]
  - Osteopenia [Unknown]
  - Blood glucose increased [Unknown]
  - Uterine leiomyoma [Unknown]
  - Dyspnoea exertional [Unknown]
  - Lower respiratory tract infection [Unknown]
  - Pleural calcification [Unknown]
  - Pulmonary granuloma [Unknown]
  - Off label use [Unknown]
